FAERS Safety Report 15319657 (Version 2)
Quarter: 2018Q4

REPORT INFORMATION
  Report Type: Report from Study
  Country: None (occurrence: FR)
  Receive Date: 20180827
  Receipt Date: 20181207
  Transmission Date: 20190204
  Serious: Yes (Disabling, Other)
  Sender: FDA-Public Use
  Company Number: FR-ABBVIE-18S-056-2462592-00

PATIENT
  Age: 79 Year
  Sex: Female

DRUGS (1)
  1. DUODOPA [Suspect]
     Active Substance: CARBIDOPA\LEVODOPA
     Indication: PARKINSON^S DISEASE
     Dosage: MD:10ML DD=6ML FROM 8AM TO 4PM AND 4ML FROM 4PM TO 8PM ND:2ML FROM 8PM TO 8AM
     Route: 050
     Dates: start: 20161110, end: 201811

REACTIONS (2)
  - Delirium [Not Recovered/Not Resolved]
  - Life expectancy shortened [Unknown]
